FAERS Safety Report 9469708 (Version 1)
Quarter: 2013Q3

REPORT INFORMATION
  Report Type: Spontaneous
  Country: US (occurrence: None)
  Receive Date: 20130820
  Receipt Date: 20130820
  Transmission Date: 20140515
  Serious: Yes (Other)
  Sender: FDA-Public Use
  Company Number: None

PATIENT
  Age: 16 Year
  Sex: Male
  Weight: 74.84 kg

DRUGS (1)
  1. DIVALPROEX [Suspect]
     Indication: CONVULSION
     Dosage: 1 TABLET, BID, ORAL
     Route: 048
     Dates: start: 20130807, end: 20130808

REACTIONS (8)
  - Cough [None]
  - Foreign body [None]
  - Dysphagia [None]
  - Choking [None]
  - Retching [None]
  - Oesophageal obstruction [None]
  - Oropharyngeal pain [None]
  - Product physical issue [None]
